FAERS Safety Report 4748127-9 (Version None)
Quarter: 2005Q3

REPORT INFORMATION
  Report Type: 
  Country: None (occurrence: None)
  Receive Date: 20050816
  Receipt Date: 20050803
  Transmission Date: 20060218
  Serious: Yes (Death, Other)
  Sender: FDA-Public Use
  Company Number: 2004106658

PATIENT
  Age: 51 Year
  Sex: Male

DRUGS (14)
  1. NEURONTIN [Suspect]
     Indication: BACK PAIN
     Dates: start: 20000101
  2. NEURONTIN [Suspect]
     Indication: BIPOLAR DISORDER
     Dates: start: 20000101
  3. NEURONTIN [Suspect]
     Indication: NECK PAIN
     Dates: start: 20000101
  4. VISTARIL [Concomitant]
  5. XANAX [Concomitant]
  6. BUSPAR [Concomitant]
  7. RISPERDAL [Concomitant]
  8. CELEXA [Concomitant]
  9. PROZAC [Concomitant]
  10. ATIVAN [Concomitant]
  11. VALIUM [Concomitant]
  12. SEROQUEL [Concomitant]
  13. TRAZODONE (TRAZODONE) [Concomitant]
  14. LEXAPRO [Concomitant]

REACTIONS (9)
  - AGORAPHOBIA [None]
  - CARPAL TUNNEL SYNDROME [None]
  - CERVICAL SPINAL STENOSIS [None]
  - COMPLETED SUICIDE [None]
  - DEPRESSION [None]
  - DRUG INEFFECTIVE [None]
  - GUN SHOT WOUND [None]
  - HEAD INJURY [None]
  - PANIC ATTACK [None]
